FAERS Safety Report 5681107-8 (Version None)
Quarter: 2008Q1

REPORT INFORMATION
  Report Type: 
  Country: None (occurrence: None)
  Receive Date: 20080325
  Receipt Date: 20080312
  Transmission Date: 20080703
  Serious: Yes (Other)
  Sender: FDA-Public Use
  Company Number: 2008AL001593

PATIENT
  Age: 80 Year
  Sex: Female

DRUGS (4)
  1. DICLOFENAC SODIUM [Suspect]
     Indication: ARTHROPATHY
  2. ALENDRONIC ACID [Concomitant]
  3. CLONAZEPAM [Concomitant]
  4. ZOPICLONE [Concomitant]

REACTIONS (5)
  - BLOOD BILIRUBIN INCREASED [None]
  - JAUNDICE [None]
  - LIVER DISORDER [None]
  - LOSS OF CONSCIOUSNESS [None]
  - TRANSAMINASES INCREASED [None]
